FAERS Safety Report 4316065-1 (Version None)
Quarter: 2004Q1

REPORT INFORMATION
  Report Type: 
  Country: None (occurrence: None)
  Receive Date: 20040310
  Receipt Date: 20040225
  Transmission Date: 20041129
  Serious: Yes (Hospitalization, Other)
  Sender: FDA-Public Use
  Company Number: HQWYE351226FEB04

PATIENT
  Age: 35 Year
  Sex: Female

DRUGS (2)
  1. PROPRANOLOL HCL [Suspect]
     Indication: HYPERTENSION
     Dosage: 40 MG 1X PER 1 DAY
     Route: 048
     Dates: start: 19940101
  2. TENORMIN [Suspect]
     Indication: HYPERTENSION
     Dosage: ORAL
     Route: 048
     Dates: start: 19920101, end: 19940101

REACTIONS (6)
  - COLD SWEAT [None]
  - CONDITION AGGRAVATED [None]
  - DYSSTASIA [None]
  - ERYTHEMA NODOSUM [None]
  - PARAESTHESIA [None]
  - PYREXIA [None]
